FAERS Safety Report 5701572-7 (Version None)
Quarter: 2008Q2

REPORT INFORMATION
  Report Type: 
  Country: None (occurrence: None)
  Receive Date: 20080408
  Receipt Date: 20080326
  Transmission Date: 20081010
  Serious: Yes (Hospitalization, Other)
  Sender: FDA-Public Use
  Company Number: 232898J08USA

PATIENT
  Age: 63 Year
  Sex: Female

DRUGS (10)
  1. REBIF [Suspect]
     Indication: MULTIPLE SCLEROSIS
     Dosage: 44 MCG, 3 IN 1 WEEKS, SUBCUTANEOUS
     Route: 058
     Dates: start: 20060612, end: 20071201
  2. REBIF [Suspect]
     Indication: MULTIPLE SCLEROSIS
     Dosage: 44 MCG, 3 IN 1 WEEKS, SUBCUTANEOUS
     Route: 058
     Dates: start: 20071201, end: 20080101
  3. REBIF [Suspect]
     Indication: MULTIPLE SCLEROSIS
     Dosage: 44 MCG, 3 IN 1 WEEKS, SUBCUTANEOUS
     Route: 058
     Dates: start: 20080101, end: 20080324
  4. BACLOFEN [Concomitant]
  5. GABAPENTIN [Concomitant]
  6. VICODIN [Concomitant]
  7. ADVIL [Concomitant]
  8. ADDERALL (OBETROL /01345401/) [Concomitant]
  9. LEXAPRO [Concomitant]
  10. CLONAZEPAM [Concomitant]

REACTIONS (8)
  - CONTUSION [None]
  - DIALYSIS [None]
  - FALL [None]
  - FEMUR FRACTURE [None]
  - FIBULA FRACTURE [None]
  - PATELLA FRACTURE [None]
  - RENAL FAILURE [None]
  - SPINAL COLUMN STENOSIS [None]
